FAERS Safety Report 11435173 (Version 2)
Quarter: 2015Q3

REPORT INFORMATION
  Report Type: Spontaneous
  Country: US (occurrence: US)
  Receive Date: 20150831
  Receipt Date: 20150910
  Transmission Date: 20151125
  Serious: Yes (Hospitalization)
  Sender: FDA-Public Use
  Company Number: US-PFIZER INC-2015283116

PATIENT
  Age: 52 Year
  Sex: Female
  Weight: 73 kg

DRUGS (1)
  1. RELPAX [Suspect]
     Active Substance: ELETRIPTAN HYDROBROMIDE
     Indication: MIGRAINE
     Dosage: 40 MG, UNK
     Dates: end: 201209

REACTIONS (6)
  - Chest pain [Unknown]
  - Headache [Unknown]
  - Oesophageal spasm [Unknown]
  - Condition aggravated [Unknown]
  - Migraine [Unknown]
  - Meningitis viral [Recovered/Resolved]

NARRATIVE: CASE EVENT DATE: 201209
